FAERS Safety Report 8988135 (Version 3)
Quarter: 2013Q1

REPORT INFORMATION
  Report Type: Other
  Country: ES (occurrence: ES)
  Receive Date: 20121227
  Receipt Date: 20130212
  Transmission Date: 20140127
  Serious: Yes (Other)
  Sender: FDA-Public Use
  Company Number: ES-BRISTOL-MYERS SQUIBB COMPANY-17247198

PATIENT
  Age: 78 Year
  Sex: Male

DRUGS (1)
  1. TRIAMCINOLONE ACE INJ [Suspect]

REACTIONS (1)
  - Uveitis [Unknown]
